FAERS Safety Report 18533684 (Version 2)
Quarter: 2020Q4

REPORT INFORMATION
  Report Type: Spontaneous
  Country: GR (occurrence: GR)
  Receive Date: 20201123
  Receipt Date: 20201125
  Transmission Date: 20210114
  Serious: Yes (Death, Other)
  Sender: FDA-Public Use
  Company Number: GR-PFIZER INC-2020460821

PATIENT
  Sex: Female

DRUGS (1)
  1. LORVIQUA [Suspect]
     Active Substance: LORLATINIB
     Dosage: UNK

REACTIONS (6)
  - Behaviour disorder [Unknown]
  - Neoplasm progression [Unknown]
  - Amnesia [Unknown]
  - Hypercholesterolaemia [Unknown]
  - Death [Fatal]
  - Off label use [Unknown]
